FAERS Safety Report 7705794-5 (Version None)
Quarter: 2011Q3

REPORT INFORMATION
  Report Type: 
  Country: None (occurrence: None)
  Receive Date: 20110824
  Receipt Date: 20110824
  Transmission Date: 20111222
  Serious: Yes (Other)
  Sender: FDA-Public Use
  Company Number: None

PATIENT
  Age: 62 Year
  Sex: Male
  Weight: 90.718 kg

DRUGS (1)
  1. SIMAVASTATIN [Suspect]
     Indication: BLOOD CHOLESTEROL INCREASED
     Dosage: 80
     Dates: start: 20100410, end: 20100715

REACTIONS (7)
  - MUSCLE SPASMS [None]
  - ASTHENIA [None]
  - MUSCLE INJURY [None]
  - GAIT DISTURBANCE [None]
  - PAIN [None]
  - MUSCULAR WEAKNESS [None]
  - FALL [None]
